FAERS Safety Report 10206136 (Version 1)
Quarter: 2014Q2

REPORT INFORMATION
  Report Type: Spontaneous
  Country: US (occurrence: US)
  Receive Date: 20140530
  Receipt Date: 20140530
  Transmission Date: 20141212
  Serious: No
  Sender: FDA-Public Use
  Company Number: US-PFIZER INC-2014148254

PATIENT
  Age: 55 Year
  Sex: Female
  Weight: 61.68 kg

DRUGS (2)
  1. EFFEXOR XR [Suspect]
     Indication: ANXIETY
     Dosage: UNK
  2. EFFEXOR XR [Suspect]
     Indication: DEPRESSION

REACTIONS (1)
  - Hyperhidrosis [Unknown]
